FAERS Safety Report 6883460-6 (Version None)
Quarter: 2010Q3

REPORT INFORMATION
  Report Type: 
  Country: None (occurrence: None)
  Receive Date: 20100729
  Receipt Date: 20100727
  Transmission Date: 20110219
  Serious: Yes (Hospitalization)
  Sender: FDA-Public Use
  Company Number: GXBR2010US01175

PATIENT
  Sex: Male
  Weight: 14.402 kg

DRUGS (4)
  1. OMNITROPE [Suspect]
     Indication: BODY HEIGHT BELOW NORMAL
     Dosage: 0.6 MG, QD
     Dates: start: 20091215, end: 20100601
  2. CYPROHEPTADINE HCL [Concomitant]
  3. PROAIR HFA [Concomitant]
  4. TRIAMCINOLONE [Concomitant]
     Route: 061

REACTIONS (2)
  - BLOOD PRESSURE INCREASED [None]
  - NEPHROTIC SYNDROME [None]
